FAERS Safety Report 13400756 (Version 2)
Quarter: 2017Q2

REPORT INFORMATION
  Report Type: Report from Study
  Country: MG (occurrence: MG)
  Receive Date: 20170404
  Receipt Date: 20170406
  Transmission Date: 20170830
  Serious: Yes (Death, Hospitalization, Other)
  Sender: FDA-Public Use
  Company Number: PHHY2017MG049385

PATIENT
  Sex: Male

DRUGS (1)
  1. GLIVEC [Suspect]
     Active Substance: IMATINIB MESYLATE
     Indication: CHRONIC MYELOID LEUKAEMIA
     Route: 065

REACTIONS (14)
  - Pyrexia [Unknown]
  - White blood cell count increased [Unknown]
  - Therapy non-responder [Unknown]
  - Chronic myeloid leukaemia [Unknown]
  - Splenomegaly [Unknown]
  - Electrolyte imbalance [Fatal]
  - Multiple organ dysfunction syndrome [Fatal]
  - Chronic myeloid leukaemia transformation [Unknown]
  - Leukostasis syndrome [Unknown]
  - Acute lymphocytic leukaemia [Fatal]
  - Septic shock [Fatal]
  - Agranulocytosis [Fatal]
  - Blast crisis in myelogenous leukaemia [Fatal]
  - Malignant neoplasm progression [Unknown]
